FAERS Safety Report 25622427 (Version 2)
Quarter: 2025Q3

REPORT INFORMATION
  Report Type: Spontaneous
  Country: US (occurrence: US)
  Receive Date: 20250730
  Receipt Date: 20250801
  Transmission Date: 20251020
  Serious: Yes (Life-Threatening, Hospitalization)
  Sender: MYLAN
  Company Number: US-MYLANLABS-2025M1063965

PATIENT
  Age: 71 Year
  Sex: Male

DRUGS (1)
  1. DOXYCYCLINE [Suspect]
     Active Substance: DOXYCYCLINE
     Indication: Leptospirosis

REACTIONS (1)
  - Drug ineffective [Unknown]
